FAERS Safety Report 7181569-3 (Version None)
Quarter: 2010Q4

REPORT INFORMATION
  Report Type: 
  Country: None (occurrence: None)
  Receive Date: 20101221
  Receipt Date: 20100426
  Transmission Date: 20110411
  Serious: Yes (Other)
  Sender: FDA-Public Use
  Company Number: US-AMGEN-QUU408842

PATIENT

DRUGS (1)
  1. ENBREL [Suspect]
     Indication: RHEUMATOID ARTHRITIS
     Dosage: 50 MG, QWK
     Route: 058
     Dates: start: 20020101

REACTIONS (9)
  - ARTHRITIS [None]
  - BITE [None]
  - HERPES ZOSTER [None]
  - HERPES ZOSTER OPHTHALMIC [None]
  - INFECTED BITES [None]
  - INJECTION SITE ERYTHEMA [None]
  - INJECTION SITE PRURITUS [None]
  - SCRATCH [None]
  - WOUND INFECTION [None]
